FAERS Safety Report 4523073-4 (Version None)
Quarter: 2004Q4

REPORT INFORMATION
  Report Type: 
  Country: None (occurrence: None)
  Receive Date: 20041208
  Receipt Date: 20041125
  Transmission Date: 20050328
  Serious: Yes (Other)
  Sender: FDA-Public Use
  Company Number: 2004090193

PATIENT
  Age: 64 Year
  Sex: Female
  Weight: 65 kg

DRUGS (1)
  1. DIFLUCAN [Suspect]
     Indication: ORAL FUNGAL INFECTION
     Dosage: 50 MG (50 MG, 1 IN 1 WK), ORAL
     Route: 048
     Dates: start: 20040907, end: 20041007

REACTIONS (4)
  - FATIGUE [None]
  - FEELING ABNORMAL [None]
  - HYPOTHERMIA [None]
  - LIVER DISORDER [None]
